FAERS Safety Report 4561761-4 (Version None)
Quarter: 2005Q1

REPORT INFORMATION
  Report Type: 
  Country: None (occurrence: None)
  Receive Date: 20050125
  Receipt Date: 20050112
  Transmission Date: 20050727
  Serious: Yes (Hospitalization, Other)
  Sender: FDA-Public Use
  Company Number: 2005012216

PATIENT
  Age: 82 Year
  Sex: Male
  Weight: 82.5547 kg

DRUGS (3)
  1. ZITHROMAX [Suspect]
     Indication: BRONCHITIS
     Dates: end: 20041225
  2. ATORVASTATIN (ATORVASTATIN) [Concomitant]
  3. POTASSIUM CHLORIDE [Concomitant]

REACTIONS (13)
  - BENIGN PROSTATIC HYPERPLASIA [None]
  - CARDIAC FAILURE CONGESTIVE [None]
  - FEELING ABNORMAL [None]
  - GASTROOESOPHAGEAL REFLUX DISEASE [None]
  - GINGIVITIS [None]
  - HYPERSENSITIVITY [None]
  - MEDICATION ERROR [None]
  - MULTIPLE ALLERGIES [None]
  - ORAL CANDIDIASIS [None]
  - OVERDOSE [None]
  - PNEUMONIA [None]
  - TONGUE DISORDER [None]
  - TONGUE ULCERATION [None]
